FAERS Safety Report 14568513 (Version 1)
Quarter: 2018Q1

REPORT INFORMATION
  Report Type: Spontaneous
  Country: ES (occurrence: ES)
  Receive Date: 20180223
  Receipt Date: 20180223
  Transmission Date: 20180509
  Serious: Yes (Other)
  Sender: FDA-Public Use
  Company Number: ES-GILEAD-2018-0322053

PATIENT
  Age: 45 Year
  Sex: Male

DRUGS (8)
  1. HARVONI [Suspect]
     Active Substance: LEDIPASVIR\SOFOSBUVIR
     Indication: HEPATITIS C
     Dosage: UNK
     Route: 065
     Dates: start: 20150617, end: 20151202
  2. MOVICOL [Concomitant]
     Active Substance: POLYETHYLENE GLYCOL 3350\POTASSIUM CHLORIDE\SODIUM BICARBONATE\SODIUM CHLORIDE
  3. CARVEDILOL. [Concomitant]
     Active Substance: CARVEDILOL
  4. LARGACTIL                          /00011901/ [Concomitant]
     Active Substance: CHLORPROMAZINE
  5. SEGURIL [Concomitant]
     Active Substance: FUROSEMIDE
  6. OMEPRAZOL                          /00661201/ [Concomitant]
     Active Substance: OMEPRAZOLE
  7. AKINETON [Concomitant]
     Active Substance: BIPERIDEN HYDROCHLORIDE
  8. TRANXILIUM [Concomitant]
     Active Substance: CLORAZEPATE DIPOTASSIUM

REACTIONS (2)
  - Drug ineffective [Recovered/Resolved]
  - Genotype drug resistance test positive [Recovered/Resolved]

NARRATIVE: CASE EVENT DATE: 201512
